FAERS Safety Report 9241121 (Version 4)
Quarter: 2013Q2

REPORT INFORMATION
  Report Type: Spontaneous
  Country: FI (occurrence: FI)
  Receive Date: 20130419
  Receipt Date: 20130507
  Transmission Date: 20140414
  Serious: Yes (Hospitalization)
  Sender: FDA-Public Use
  Company Number: FI-AMGEN-FINSP2013025597

PATIENT
  Age: 65 Year
  Sex: Female

DRUGS (8)
  1. NEULASTA [Suspect]
     Indication: PROPHYLAXIS
     Dosage: 6 MG, AFTER CHEMO
     Route: 058
     Dates: start: 2007
  2. CYCLOPHOSPHAMIDE [Concomitant]
     Indication: BREAST CANCER
     Dosage: UNK
  3. EPIRUBICIN [Concomitant]
     Indication: BREAST CANCER
     Dosage: UNK
  4. FLUOROURACIL [Concomitant]
     Indication: BREAST CANCER
     Dosage: UNK
  5. SOMAC [Concomitant]
     Dosage: 40 MG, QD
     Route: 048
  6. ASACOL [Concomitant]
     Dosage: 2400 MG DAILY, (400MG TABLET)
     Route: 048
  7. BISOPROLOL [Concomitant]
     Dosage: 7.5 MG DAILY (5 MG TABLET)
     Route: 048
  8. PREDNISON [Concomitant]
     Dosage: 40 MG, QD (5 MG TABLET)
     Route: 048

REACTIONS (2)
  - Neutropenia [Recovered/Resolved]
  - Drug ineffective [Unknown]
